FAERS Safety Report 7227107-8 (Version None)
Quarter: 2011Q1

REPORT INFORMATION
  Report Type: 
  Country: None (occurrence: None)
  Receive Date: 20110114
  Receipt Date: 20101216
  Transmission Date: 20110831
  Serious: Yes (Hospitalization)
  Sender: FDA-Public Use
  Company Number: US-ROCHE-751896

PATIENT
  Age: 82 Year
  Sex: Female

DRUGS (9)
  1. CELEBREX [Suspect]
     Route: 048
     Dates: start: 20080701, end: 20101101
  2. NAPROXEN [Suspect]
     Indication: ARTHRITIS
     Dosage: MORE THAN 220 MG, UNKNOWN MANUFACTURER
     Route: 065
     Dates: start: 20080612
  3. LIPITOR [Concomitant]
  4. CELEBREX [Suspect]
     Indication: ARTHRITIS
     Route: 048
     Dates: start: 20050710
  5. PIROXICAM [Suspect]
     Indication: ARTHRITIS
     Route: 065
     Dates: start: 20080710
  6. VITAMIN B-12 [Concomitant]
  7. NAPROXEN [Suspect]
     Route: 065
     Dates: start: 20080601
  8. DEMEROL [Suspect]
     Route: 065
  9. SYNTHROID [Concomitant]

REACTIONS (4)
  - APPARENT DEATH [None]
  - FOOT OPERATION [None]
  - KNEE ARTHROPLASTY [None]
  - DRUG HYPERSENSITIVITY [None]
